FAERS Safety Report 23367933 (Version 2)
Quarter: 2024Q1

REPORT INFORMATION
  Report Type: Spontaneous
  Country: CZ (occurrence: CZ)
  Receive Date: 20240105
  Receipt Date: 20240125
  Transmission Date: 20240410
  Serious: Yes (Disabling, Other)
  Sender: FDA-Public Use
  Company Number: None

PATIENT
  Age: 40 Year
  Sex: Female
  Weight: 74 kg

DRUGS (11)
  1. MEDROL [Suspect]
     Active Substance: METHYLPREDNISOLONE
     Indication: Antiinflammatory therapy
     Dosage: UNK
  2. MEDROL [Suspect]
     Active Substance: METHYLPREDNISOLONE
     Indication: Rheumatoid arthritis
     Dosage: 6 MG
     Route: 048
     Dates: start: 20230903, end: 20231211
  3. MEDROL [Suspect]
     Active Substance: METHYLPREDNISOLONE
     Dosage: INCREASED MEDROL AGAIN TO 1.5 MG DAILY
  4. MEDROL [Suspect]
     Active Substance: METHYLPREDNISOLONE
     Dosage: 1.5 MG
  5. XELJANZ [Concomitant]
     Active Substance: TOFACITINIB CITRATE
     Indication: Rheumatoid arthritis
     Dosage: STILL TAKING MEDICINAL PROD. AT TIME WHEN RETINOPATHY STARTED, WAS 4 WKS SINCE BEGINNING OF THERAPY
     Route: 048
     Dates: start: 20231102
  6. CIMZIA [Concomitant]
     Active Substance: CERTOLIZUMAB PEGOL
     Indication: Rheumatoid arthritis
     Dosage: ONCE PER TWO WEEKS
     Dates: start: 2014, end: 2023
  7. CALCIUM CARBONATE [Concomitant]
     Active Substance: CALCIUM CARBONATE
  8. FOLIC ACID [Concomitant]
     Active Substance: FOLIC ACID
  9. CHOLECALCIFEROL [Concomitant]
     Active Substance: CHOLECALCIFEROL
  10. METHOTREXATE [Concomitant]
     Active Substance: METHOTREXATE
     Dates: start: 2007
  11. EUTHYROX [Concomitant]
     Active Substance: LEVOTHYROXINE SODIUM

REACTIONS (7)
  - Visual field defect [Not Recovered/Not Resolved]
  - Retinopathy [Not Recovered/Not Resolved]
  - Metamorphopsia [Not Recovered/Not Resolved]
  - Vision blurred [Not Recovered/Not Resolved]
  - Detachment of macular retinal pigment epithelium [Not Recovered/Not Resolved]
  - Central serous chorioretinopathy [Not Recovered/Not Resolved]
  - Rheumatoid arthritis [Unknown]

NARRATIVE: CASE EVENT DATE: 20230101
